FAERS Safety Report 4783715-5 (Version None)
Quarter: 2005Q3

REPORT INFORMATION
  Report Type: 
  Country: None (occurrence: None)
  Receive Date: 20050928
  Receipt Date: 20050826
  Transmission Date: 20060218
  Serious: Yes (Other)
  Sender: FDA-Public Use
  Company Number: 2005048261

PATIENT
  Age: 59 Year
  Sex: Male
  Weight: 71 kg

DRUGS (7)
  1. GENOTONORM (SOMATROPIN) [Suspect]
     Indication: GROWTH HORMONE DEFICIENCY
     Dosage: 0.2 MG (1 IN 1 D); 0.3 MG (1 IN 1 D)
     Dates: start: 20040920, end: 20050607
  2. GENOTONORM (SOMATROPIN) [Suspect]
     Indication: GROWTH HORMONE DEFICIENCY
     Dosage: 0.2 MG (1 IN 1 D); 0.3 MG (1 IN 1 D)
     Dates: start: 20050331
  3. ANDROTARDYL (TESTOSTERONE ENANTATE) [Suspect]
     Indication: BLOOD GONADOTROPHIN DECREASED
     Dosage: 205 MG, INTRAMUSCULAR
     Route: 030
  4. CRESTOR [Concomitant]
  5. FLECAINIDE ACETATE [Concomitant]
  6. CLONAZEPAM [Concomitant]
  7. TRAMADOL HCL [Concomitant]

REACTIONS (10)
  - ANXIETY [None]
  - BLOOD CORTISOL DECREASED [None]
  - COMEDONE [None]
  - ERECTILE DYSFUNCTION [None]
  - HAIR GROWTH ABNORMAL [None]
  - OSTEOPOROSIS [None]
  - TESTICULAR PAIN [None]
  - TESTICULAR SWELLING [None]
  - URINARY RETENTION [None]
  - VARICOCELE [None]
